FAERS Safety Report 18495613 (Version 1)
Quarter: 2020Q4

REPORT INFORMATION
  Report Type: Spontaneous
  Country: US (occurrence: US)
  Receive Date: 20201112
  Receipt Date: 20201112
  Transmission Date: 20210114
  Serious: Yes (Hospitalization)
  Sender: FDA-Public Use
  Company Number: None

PATIENT
  Sex: Female
  Weight: 67.6 kg

DRUGS (5)
  1. ONCASPAR [Suspect]
     Active Substance: PEGASPARGASE
  2. DAUNORUBICINN 100 MG [Suspect]
     Active Substance: DAUNORUBICIN
  3. METHOTREXATE?15MG [Suspect]
     Active Substance: METHOTREXATE
  4. VINCRI STINE SULFATE 8MG [Suspect]
     Active Substance: VINCRISTINE SULFATE
  5. CYTARABINE 150 MG [Suspect]
     Active Substance: CYTARABINE

REACTIONS (5)
  - Hypertriglyceridaemia [None]
  - Performance status decreased [None]
  - Abdominal pain upper [None]
  - Pancreatitis [None]
  - Influenza [None]

NARRATIVE: CASE EVENT DATE: 20201110
